FAERS Safety Report 8351531-3 (Version None)
Quarter: 2012Q2

REPORT INFORMATION
  Report Type: 
  Country: None (occurrence: None)
  Receive Date: 20120511
  Receipt Date: 20120503
  Transmission Date: 20120825
  Serious: Yes (Other)
  Sender: FDA-Public Use
  Company Number: IL-AMGEN-ISRSP2012024518

PATIENT
  Age: 70 Year
  Sex: Male

DRUGS (8)
  1. ZOLPIDEM TARTRATE [Concomitant]
     Dosage: UNK
  2. FOLIC ACID [Concomitant]
     Dosage: UNK
  3. RIFAMPIN [Concomitant]
     Dosage: UNK
  4. MICROPIRIN [Concomitant]
     Dosage: UNK
  5. ALLORIL [Concomitant]
     Dosage: UNK
  6. ENBREL [Suspect]
     Indication: PSORIASIS
     Dosage: UNK
     Route: 065
     Dates: start: 20110417
  7. NORMITEN [Concomitant]
     Dosage: UNK
  8. ESCITALOPRAM [Concomitant]
     Dosage: UNK

REACTIONS (1)
  - PHARYNGEAL OPERATION [None]
